FAERS Safety Report 25640406 (Version 2)
Quarter: 2025Q4

REPORT INFORMATION
  Report Type: Spontaneous
  Country: AU (occurrence: AU)
  Receive Date: 20250804
  Receipt Date: 20251105
  Transmission Date: 20260118
  Serious: Yes (Hospitalization, Other)
  Sender: ABBVIE
  Company Number: AU-ABBVIE-6396208

PATIENT
  Age: 64 Year
  Sex: Female

DRUGS (2)
  1. HUMIRA [Suspect]
     Active Substance: ADALIMUMAB
     Indication: Rheumatoid arthritis
     Route: 058
  2. INFLIXIMAB [Suspect]
     Active Substance: INFLIXIMAB
     Indication: Sarcoidosis
     Dosage: 5MG/KG, QUANTITY DOSING AT WEEK 0, 2, 6 THEN 6 WEEKLY ONGOING
     Route: 065

REACTIONS (7)
  - Sarcoidosis of lymph node [Unknown]
  - Uveitis [Unknown]
  - Interstitial lung disease [Unknown]
  - Cardiac disorder [Unknown]
  - Abnormal loss of weight [Unknown]
  - Hilar lymphadenopathy [Unknown]
  - Intentional product use issue [Unknown]
